FAERS Safety Report 19495952 (Version 1)
Quarter: 2021Q3

REPORT INFORMATION
  Report Type: Spontaneous
  Country: DE (occurrence: DE)
  Receive Date: 20210706
  Receipt Date: 20210706
  Transmission Date: 20211014
  Serious: Yes (Hospitalization)
  Sender: FDA-Public Use
  Company Number: DE-TEVA-2021-DE-1929613

PATIENT
  Age: 80 Year
  Sex: Male
  Weight: 78 kg

DRUGS (9)
  1. METFORMIN [Concomitant]
     Active Substance: METFORMIN HYDROCHLORIDE
     Dosage: 500 MILLIGRAM DAILY;  0?0?1?0
     Route: 048
  2. SITAGLIPTIN [Concomitant]
     Active Substance: SITAGLIPTIN
     Dosage: 25 MILLIGRAM DAILY; 1?0?0?0
     Route: 048
  3. METOPROLOL. [Concomitant]
     Active Substance: METOPROLOL
     Dosage: .5 DOSAGE FORMS DAILY; 100 MG, 0.5?0?0?0
     Route: 048
  4. IBUPROFEN. [Suspect]
     Active Substance: IBUPROFEN
     Dosage: NEED
     Route: 048
  5. ACETYLSALICYLSAURE [Suspect]
     Active Substance: ASPIRIN
     Dosage: 100 MILLIGRAM DAILY;  0?0?1?0
     Route: 048
  6. ALLOPURINOL. [Concomitant]
     Active Substance: ALLOPURINOL
     Dosage: 100 MILLIGRAM DAILY;  0?1?0?0
     Route: 048
  7. FLUVASTATIN [Concomitant]
     Active Substance: FLUVASTATIN SODIUM
     Dosage: 20 MILLIGRAM DAILY; 0?0?1?0
     Route: 048
  8. RIVAROXABAN [Suspect]
     Active Substance: RIVAROXABAN
     Dosage: 15 MILLIGRAM DAILY; 1?0?0?0
     Route: 048
  9. TORASEMID [Concomitant]
     Active Substance: TORSEMIDE
     Dosage: 10 MILLIGRAM DAILY; 1?0?0?0
     Route: 048

REACTIONS (5)
  - Weight decreased [Recovering/Resolving]
  - Anaemia [Recovering/Resolving]
  - General physical health deterioration [Recovering/Resolving]
  - Medication error [Unknown]
  - Fatigue [Recovering/Resolving]
